FAERS Safety Report 20776283 (Version 2)
Quarter: 2022Q2

REPORT INFORMATION
  Report Type: Spontaneous
  Country: US (occurrence: US)
  Receive Date: 20220502
  Receipt Date: 20220505
  Transmission Date: 20220721
  Serious: No
  Sender: FDA-Public Use
  Company Number: US-SA-SAC20220427002149

PATIENT
  Sex: Male
  Weight: 68.027 kg

DRUGS (8)
  1. ALPROLIX [Suspect]
     Active Substance: EFTRENONACOG ALFA
     Indication: Factor IX deficiency
     Dosage: 3266 U
     Route: 042
     Dates: start: 202111
  2. ALPROLIX [Suspect]
     Active Substance: EFTRENONACOG ALFA
     Indication: Factor IX deficiency
     Dosage: 3266 U
     Route: 042
     Dates: start: 202111
  3. ALPROLIX [Suspect]
     Active Substance: EFTRENONACOG ALFA
     Dosage: 4316 U
     Route: 042
     Dates: start: 202111
  4. ALPROLIX [Suspect]
     Active Substance: EFTRENONACOG ALFA
     Dosage: 4316 U
     Route: 042
     Dates: start: 202111
  5. ALPROLIX [Suspect]
     Active Substance: EFTRENONACOG ALFA
     Dosage: 7350 IU ((7350-8085), QW (WEEKLY AND AS NEEDED FOR MINOR BLEEDING)
     Route: 042
  6. ALPROLIX [Suspect]
     Active Substance: EFTRENONACOG ALFA
     Dosage: 7350 IU ((7350-8085), QW (WEEKLY AND AS NEEDED FOR MINOR BLEEDING)
     Route: 042
  7. ALPROLIX [Suspect]
     Active Substance: EFTRENONACOG ALFA
     Dosage: 12250 IU (12250-13475), PRN (AS NEEDED) FOR MAJOR BLEEDING
     Route: 042
  8. ALPROLIX [Suspect]
     Active Substance: EFTRENONACOG ALFA
     Dosage: 12250 IU (12250-13475), PRN (AS NEEDED) FOR MAJOR BLEEDING
     Route: 042

REACTIONS (2)
  - Weight decreased [Unknown]
  - Treatment noncompliance [Unknown]
